FAERS Safety Report 7361094-7 (Version None)
Quarter: 2011Q1

REPORT INFORMATION
  Report Type: 
  Country: None (occurrence: None)
  Receive Date: 20110318
  Receipt Date: 20110310
  Transmission Date: 20110831
  Serious: Yes (Hospitalization, Other)
  Sender: FDA-Public Use
  Company Number: CA-ROCHE-764891

PATIENT
  Sex: Male

DRUGS (8)
  1. PREDNISONE [Concomitant]
  2. TOCILIZUMAB [Suspect]
     Indication: RHEUMATOID ARTHRITIS
     Dosage: FORM: INFUSION
     Route: 042
     Dates: start: 20101103
  3. CELEXA [Concomitant]
  4. RANITIDINE [Concomitant]
  5. LEFLUNOMIDE [Concomitant]
  6. ACTONEL [Concomitant]
  7. TYLENOL W/ CODEINE NO. 3 [Concomitant]
     Dosage: PRN (AS NECESSARY)
  8. AVALIDE [Concomitant]

REACTIONS (2)
  - SURGERY [None]
  - POST PROCEDURAL INFECTION [None]
